FAERS Safety Report 19140896 (Version 2)
Quarter: 2021Q2

REPORT INFORMATION
  Report Type: Other
  Country: US (occurrence: US)
  Receive Date: 20210415
  Receipt Date: 20210615
  Transmission Date: 20210717
  Serious: Yes (Death, Other)
  Sender: FDA-Public Use
  Company Number: US-ROCHE-2802527

PATIENT
  Age: 27 Year
  Sex: Male

DRUGS (1)
  1. OCREVUS [Suspect]
     Active Substance: OCRELIZUMAB
     Indication: RELAPSING MULTIPLE SCLEROSIS
     Dosage: DATE OF TREATMENT: 27/APR/2020. LAST DOSE OF OCRELIZUMAB ON 28/OCT/2020
     Route: 065
     Dates: start: 20200409, end: 20201029

REACTIONS (17)
  - Hypokalaemia [Unknown]
  - Normocytic anaemia [Unknown]
  - Urinary incontinence [Unknown]
  - Nervous system disorder [Unknown]
  - COVID-19 [Fatal]
  - Musculoskeletal disorder [Unknown]
  - Constipation [Unknown]
  - Leukopenia [Unknown]
  - Vitamin D deficiency [Unknown]
  - Insomnia [Unknown]
  - Pneumonia viral [Unknown]
  - Acute respiratory failure [Unknown]
  - Pneumonia aspiration [Unknown]
  - Deep vein thrombosis [Unknown]
  - Tremor [Unknown]
  - Liver function test increased [Unknown]
  - Dysarthria [Unknown]

NARRATIVE: CASE EVENT DATE: 20201215
